FAERS Safety Report 20173058 (Version 2)
Quarter: 2022Q1

REPORT INFORMATION
  Report Type: Spontaneous
  Country: AT (occurrence: AT)
  Receive Date: 20211211
  Receipt Date: 20220216
  Transmission Date: 20220423
  Serious: Yes (Other)
  Sender: FDA-Public Use
  Company Number: AT-NOVARTISPH-NVSC2021AT279669

PATIENT
  Age: 81 Year
  Sex: Male

DRUGS (13)
  1. LISINOPRIL [Suspect]
     Active Substance: LISINOPRIL
     Indication: Hypertension
     Dosage: 5 MG, BID (IN THE MORNING AND EVENING)
     Route: 065
  2. LISINOPRIL [Suspect]
     Active Substance: LISINOPRIL
     Dosage: 10 MG, TID
     Route: 065
  3. LISINOPRIL [Suspect]
     Active Substance: LISINOPRIL
     Dosage: UNK UNK, TID (3X 8H: 20MG IN THE MORNING, 20MG AROUND 15-16P.M. AND 5MG AND 11PM)
     Route: 065
  4. LISINOPRIL [Suspect]
     Active Substance: LISINOPRIL
     Dosage: 5 MG
     Route: 065
     Dates: start: 20201021
  5. LISINOPRIL [Suspect]
     Active Substance: LISINOPRIL
     Dosage: 5 MG, QID
     Route: 065
     Dates: start: 20210216
  6. LISINOPRIL [Suspect]
     Active Substance: LISINOPRIL
     Dosage: 40 MG
     Route: 065
  7. LISINOPRIL [Suspect]
     Active Substance: LISINOPRIL
     Dosage: 15 MG
     Route: 065
     Dates: start: 20210410, end: 20210520
  8. LISINOPRIL [Suspect]
     Active Substance: LISINOPRIL
     Dosage: 20 MG
     Route: 065
     Dates: start: 20210520, end: 20210604
  9. LISINOPRIL [Suspect]
     Active Substance: LISINOPRIL
     Dosage: 15 MG
     Route: 065
     Dates: start: 20210604, end: 20210825
  10. LISINOPRIL [Suspect]
     Active Substance: LISINOPRIL
     Dosage: 20 MG
     Route: 065
     Dates: start: 20210825, end: 20211109
  11. LISINOPRIL [Suspect]
     Active Substance: LISINOPRIL
     Dosage: 30 MG
     Route: 065
     Dates: start: 20211109, end: 20211211
  12. LISINOPRIL [Suspect]
     Active Substance: LISINOPRIL
     Dosage: 35 MG
     Route: 065
     Dates: start: 20211211, end: 20220109
  13. LISINOPRIL [Suspect]
     Active Substance: LISINOPRIL
     Dosage: 5 MG, QD,LATE IN THE EVENING
     Route: 065
     Dates: start: 20220109

REACTIONS (5)
  - Erectile dysfunction [Unknown]
  - Blood pressure increased [Recovered/Resolved]
  - Rhinorrhoea [Unknown]
  - Rhinitis [Recovered/Resolved]
  - Drug ineffective [Recovering/Resolving]

NARRATIVE: CASE EVENT DATE: 20210216
